FAERS Safety Report 8173025-0 (Version None)
Quarter: 2012Q1

REPORT INFORMATION
  Report Type: 
  Country: None (occurrence: None)
  Receive Date: 20120229
  Receipt Date: 20120224
  Transmission Date: 20120608
  Serious: Yes (Other)
  Sender: FDA-Public Use
  Company Number: FR-JNJFOC-20120213453

PATIENT
  Sex: Female

DRUGS (1)
  1. LISTERINE TEETH AND GUM DEFENSE [Suspect]
     Indication: DENTAL DISORDER PROPHYLAXIS
     Route: 048
     Dates: end: 20120223

REACTIONS (2)
  - LARYNGEAL OEDEMA [None]
  - DYSPNOEA [None]
